APPROVED DRUG PRODUCT: HMS
Active Ingredient: MEDRYSONE
Strength: 1%
Dosage Form/Route: SUSPENSION;OPHTHALMIC
Application: N016624 | Product #003
Applicant: ALLERGAN PHARMACEUTICAL
Approved: Approved Prior to Jan 1, 1982 | RLD: No | RS: No | Type: DISCN